FAERS Safety Report 7654885-6 (Version None)
Quarter: 2011Q3

REPORT INFORMATION
  Report Type: 
  Country: None (occurrence: None)
  Receive Date: 20110804
  Receipt Date: 20110727
  Transmission Date: 20111222
  Serious: Yes (Life-Threatening, Hospitalization, Other)
  Sender: FDA-Public Use
  Company Number: US-BAYER-2010-005349

PATIENT
  Age: 28 Year
  Sex: Female
  Weight: 52 kg

DRUGS (12)
  1. BISMUTH SUBSALICYLATE [Concomitant]
     Dosage: UNK
     Dates: start: 20081201
  2. EFFEXOR [Concomitant]
  3. LEVAQUIN [Concomitant]
     Dosage: UNK
     Dates: start: 20081201
  4. LUNESTA [Concomitant]
     Dosage: 2 MG, UNK
     Route: 048
  5. LEXAPRO [Concomitant]
     Indication: AFFECTIVE DISORDER
  6. HALCION [Concomitant]
     Dosage: 0.25 MG, UNK
     Route: 048
  7. YASMIN [Suspect]
     Indication: PREMENSTRUAL SYNDROME
  8. TRAZODONE HYDROCHLORIDE [Concomitant]
     Dosage: 25 MG, HS
  9. AMBIEN [Concomitant]
     Dosage: 12.5 MG, UNK
  10. NEXIUM [Concomitant]
     Dosage: UNK
     Dates: start: 20081201
  11. AMOXICILLIN [Concomitant]
     Dosage: 250 MG, TID
     Route: 048
  12. PRENATAL VITAMINS [Concomitant]
     Dosage: UNK UNK, QD
     Route: 048

REACTIONS (8)
  - DISABILITY [None]
  - THROMBOSIS [None]
  - PAIN [None]
  - CHOLECYSTECTOMY [None]
  - BILIARY DYSKINESIA [None]
  - EMOTIONAL DISTRESS [None]
  - CHOLECYSTITIS CHRONIC [None]
  - INJURY [None]
